FAERS Safety Report 8122891-3 (Version None)
Quarter: 2012Q1

REPORT INFORMATION
  Report Type: 
  Country: None (occurrence: None)
  Receive Date: 20120208
  Receipt Date: 20120202
  Transmission Date: 20120608
  Serious: Yes (Other)
  Sender: FDA-Public Use
  Company Number: US-PFIZER INC-2012029544

PATIENT
  Sex: Male
  Weight: 71.202 kg

DRUGS (5)
  1. LOPRESSOR [Concomitant]
     Indication: CARDIAC DISORDER
     Dosage: 50 MG, UNK
  2. TOVIAZ [Suspect]
     Indication: URINARY INCONTINENCE
     Dosage: 4 MG, 1X/DAY
     Route: 048
     Dates: start: 20120101
  3. NITROGLYCERIN [Concomitant]
     Indication: CHEST PAIN
     Dosage: UNK
  4. METFORMIN [Concomitant]
     Indication: DIABETES MELLITUS
     Dosage: UNK
  5. ARICEPT [Concomitant]
     Dosage: 10 MG, 1X/DAY

REACTIONS (4)
  - CONSTIPATION [None]
  - DRY MOUTH [None]
  - BRONCHITIS [None]
  - NASOPHARYNGITIS [None]
